FAERS Safety Report 4979080-0 (Version None)
Quarter: 2006Q2

REPORT INFORMATION
  Report Type: 
  Country: None (occurrence: None)
  Receive Date: 20060414
  Receipt Date: 20060407
  Transmission Date: 20061013
  Serious: No
  Sender: FDA-Public Use
  Company Number: ZONI002294

PATIENT
  Age: 6 Year
  Sex: Male

DRUGS (8)
  1. ZONISAMIDE [Suspect]
     Indication: EPILEPSY
     Dosage: 160 MG, 2 IN 1 D, ORAL; SEE IMAGE
     Route: 048
     Dates: start: 20030913, end: 20040120
  2. ZONISAMIDE [Suspect]
     Indication: EPILEPSY
     Dosage: 160 MG, 2 IN 1 D, ORAL; SEE IMAGE
     Route: 048
     Dates: start: 20040121, end: 20040523
  3. ZONISAMIDE [Suspect]
     Indication: EPILEPSY
     Dosage: 160 MG, 2 IN 1 D, ORAL; SEE IMAGE
     Route: 048
     Dates: start: 20040524
  4. MYSTAN (CLOBAZAM) [Suspect]
     Indication: EPILEPSY
     Dosage: 16 MG, 2 IN 1 D, ORAL
     Route: 048
     Dates: start: 20030913, end: 20050510
  5. MYSTAN (CLOBAZAM) [Suspect]
     Indication: EPILEPSY
     Dosage: 16 MG, 2 IN 1 D, ORAL
     Route: 048
     Dates: start: 20050511
  6. DEPAKENE [Suspect]
     Indication: EPILEPSY
     Dosage: 1305 MG, 3 IN 1 D, ORAL
     Route: 048
     Dates: start: 20000630, end: 20021210
  7. DEPAKENE [Suspect]
     Indication: EPILEPSY
     Dosage: 1305 MG, 3 IN 1 D, ORAL
     Route: 048
     Dates: start: 20021211
  8. NEORAL [Suspect]
     Indication: HISTIOCYTOSIS HAEMATOPHAGIC
     Dosage: 60 MG, 2 IN 1 D, ORAL
     Route: 048
     Dates: start: 20000729, end: 20010509

REACTIONS (6)
  - ATELECTASIS [None]
  - GASTRIC DISORDER [None]
  - METABOLIC ACIDOSIS [None]
  - NEPHRITIS INTERSTITIAL [None]
  - PNEUMONIA [None]
  - RENAL TUBULAR ACIDOSIS [None]
